FAERS Safety Report 14051468 (Version 1)
Quarter: 2017Q4

REPORT INFORMATION
  Report Type: Spontaneous
  Country: US (occurrence: US)
  Receive Date: 20171005
  Receipt Date: 20171005
  Transmission Date: 20180321
  Serious: No
  Sender: FDA-Public Use
  Company Number: US-SEATTLE GENETICS-2017SGN01487

PATIENT
  Age: 50 Year
  Sex: Male

DRUGS (1)
  1. ADCETRIS [Suspect]
     Active Substance: BRENTUXIMAB VEDOTIN
     Indication: PRODUCT USED FOR UNKNOWN INDICATION
     Dosage: 130 MG, Q4WEEKS
     Route: 042
     Dates: start: 20170111

REACTIONS (6)
  - Cough [Unknown]
  - Diarrhoea [Unknown]
  - Dry skin [Recovered/Resolved]
  - Pruritus [Unknown]
  - Drug dose omission [Unknown]
  - Contusion [Unknown]
